FAERS Safety Report 20191734 (Version 2)
Quarter: 2021Q4

REPORT INFORMATION
  Report Type: Report from Study
  Country: GB (occurrence: GB)
  Receive Date: 20211216
  Receipt Date: 20211228
  Transmission Date: 20220304
  Serious: Yes (Hospitalization)
  Sender: FDA-Public Use
  Company Number: None

PATIENT
  Age: 65 Year
  Sex: Female

DRUGS (27)
  1. CAPECITABINE [Suspect]
     Active Substance: CAPECITABINE
     Indication: Breast cancer
     Dosage: 2150 MG
     Route: 048
     Dates: start: 20180411, end: 20180605
  2. EXEMESTANE [Suspect]
     Active Substance: EXEMESTANE
     Indication: Breast cancer
     Dosage: ONGOING
     Route: 048
     Dates: start: 20180920
  3. LETROZOLE [Suspect]
     Active Substance: LETROZOLE
     Indication: Breast cancer metastatic
     Dosage: 2.5 MILLIGRAM DAILY
     Route: 048
     Dates: start: 20170718, end: 20180228
  4. TRASTUZUMAB [Suspect]
     Active Substance: TRASTUZUMAB
     Indication: Breast cancer
     Dosage: ONGOING, 600MG
     Route: 058
     Dates: start: 20180228
  5. HYALURONATE SODIUM [Suspect]
     Active Substance: HYALURONATE SODIUM
     Indication: Breast cancer metastatic
     Dosage: 600 MILLIGRAM, FOR EVERY 3 WEEKS
     Route: 058
     Dates: start: 20180228
  6. POLYETHYLENE GLYCOL 3350\POTASSIUM CHLORIDE\SODIUM BICARBONATE\SODIUM [Concomitant]
     Active Substance: POLYETHYLENE GLYCOL 3350\POTASSIUM CHLORIDE\SODIUM BICARBONATE\SODIUM CHLORIDE
     Indication: Product used for unknown indication
     Dosage: POWDER FOR DISSOLVING IN WATER
     Route: 048
     Dates: start: 201810
  7. LOPERAMIDE [Concomitant]
     Active Substance: LOPERAMIDE
     Indication: Product used for unknown indication
     Route: 048
     Dates: start: 20180320
  8. ACETAMINOPHEN [Concomitant]
     Active Substance: ACETAMINOPHEN
     Indication: Product used for unknown indication
     Route: 048
     Dates: start: 20180129
  9. COCODAMOL [Concomitant]
     Active Substance: ACETAMINOPHEN\CODEINE PHOSPHATE
     Indication: Product used for unknown indication
     Dosage: 530 MG
     Route: 048
     Dates: start: 20180215
  10. FLUCLOXACILLIN [Concomitant]
     Active Substance: FLUCLOXACILLIN
     Dosage: 500 MG
     Route: 048
     Dates: start: 20180924, end: 20181004
  11. ALTEPLASE [Concomitant]
     Active Substance: ALTEPLASE
     Indication: Infectious pleural effusion
     Dosage: 10 MILLIGRAM, TWO RIMES A DAY
     Dates: start: 20190107, end: 20190110
  12. AZATHIOPRINE [Concomitant]
     Active Substance: AZATHIOPRINE
     Indication: Product used for unknown indication
     Dosage: 150 MILLIGRAM, ONCE A DAY
     Dates: start: 201001, end: 20180228
  13. BENZYDAMINE [Concomitant]
     Active Substance: BENZYDAMINE
     Indication: Product used for unknown indication
  14. CYCLIZINE [Concomitant]
     Active Substance: CYCLIZINE
     Indication: Product used for unknown indication
     Dosage: 50 MILLIGRAM
     Route: 048
     Dates: start: 20180216, end: 20180217
  15. DALTEPARIN [Concomitant]
     Active Substance: DALTEPARIN
     Dosage: 5000 INTERNATIONAL UNIT
     Route: 058
     Dates: start: 20180606, end: 20180607
  16. DOMPERIDONE [Concomitant]
     Active Substance: DOMPERIDONE
     Indication: Product used for unknown indication
     Dosage: 10 MILLIGRAM, 3 TIMES A DAY
     Dates: start: 20180228, end: 20180313
  17. METRONIDAZOLE [Concomitant]
     Active Substance: METRONIDAZOLE
     Indication: Product used for unknown indication
     Dosage: 500 MILLIGRAM, 3 TIMES A DAY
     Dates: start: 20180606, end: 20180607
  18. MORPHINE SULFATE [Concomitant]
     Active Substance: MORPHINE SULFATE
     Indication: Product used for unknown indication
     Dosage: 5 MILLIGRAM
     Dates: start: 20180215, end: 20180216
  19. PULMOZYME [Concomitant]
     Active Substance: DORNASE ALFA
     Dosage: 10 MILLIGRAM DAILY
     Dates: start: 20190107, end: 20190110
  20. ACETAMINOPHEN AND CODEINE [Concomitant]
     Active Substance: ACETAMINOPHEN\CODEINE PHOSPHATE
     Indication: Product used for unknown indication
     Dosage: TWO TIMES A DAY
     Dates: start: 20180129, end: 20180215
  21. PIPERACILLIN SODIUM\TAZOBACTAM SODIUM [Concomitant]
     Active Substance: PIPERACILLIN SODIUM\TAZOBACTAM SODIUM
     Indication: Product used for unknown indication
     Dosage: 4.5 GRAM
     Dates: start: 20180603, end: 20180606
  22. ONDANSETRON [Concomitant]
     Active Substance: ONDANSETRON
  23. AMOXICILLIN [Concomitant]
     Active Substance: AMOXICILLIN
  24. PROCHLORPERAZINE MALEATE [Concomitant]
     Active Substance: PROCHLORPERAZINE MALEATE
  25. CASPOFUNGIN [Concomitant]
     Active Substance: CASPOFUNGIN
  26. ENOXAPARIN [Concomitant]
     Active Substance: ENOXAPARIN
  27. OMEPRAZOLE [Concomitant]
     Active Substance: OMEPRAZOLE

REACTIONS (5)
  - Cough [Not Recovered/Not Resolved]
  - Pain in extremity [Not Recovered/Not Resolved]
  - Arthralgia [Not Recovered/Not Resolved]
  - Paraesthesia [Not Recovered/Not Resolved]
  - Device related infection [Recovered/Resolved with Sequelae]

NARRATIVE: CASE EVENT DATE: 20180603
